FAERS Safety Report 6938855-9 (Version None)
Quarter: 2010Q3

REPORT INFORMATION
  Report Type: 
  Country: None (occurrence: None)
  Receive Date: 20100824
  Receipt Date: 20100813
  Transmission Date: 20110219
  Serious: Yes (Hospitalization)
  Sender: FDA-Public Use
  Company Number: A0876878A

PATIENT
  Age: 62 Year
  Sex: Male
  Weight: 67.7 kg

DRUGS (14)
  1. OFATUMUMAB [Suspect]
     Route: 042
     Dates: start: 20100803
  2. BENDAMUSTINE [Suspect]
     Dates: start: 20100803
  3. LISINOPRIL [Concomitant]
     Dates: start: 20070309
  4. LANTUS [Concomitant]
     Route: 058
     Dates: start: 20050909
  5. METFORMIN [Concomitant]
     Dates: start: 20070309
  6. AMBIEN [Concomitant]
     Dates: start: 20090512
  7. GLUCOSAMINE [Concomitant]
  8. ZOFRAN [Concomitant]
     Dates: start: 20100808
  9. DEMEROL [Concomitant]
     Dates: start: 20100803, end: 20100803
  10. PRILOSEC [Concomitant]
     Dates: start: 20100427
  11. DEXAMETHASONE [Concomitant]
     Indication: PREMEDICATION
     Dates: start: 20100809, end: 20100810
  12. DEXAMETHASONE [Concomitant]
     Dates: start: 20100803
  13. ACETAMINOPHEN [Concomitant]
     Indication: PREMEDICATION
     Dates: start: 20100803
  14. BENADRYL [Concomitant]
     Indication: PREMEDICATION
     Dates: start: 20100803

REACTIONS (6)
  - ANAEMIA [None]
  - HYPERGLYCAEMIA [None]
  - HYPERKALAEMIA [None]
  - LEUKOPENIA [None]
  - THROMBOCYTOPENIA [None]
  - TUMOUR LYSIS SYNDROME [None]
